FAERS Safety Report 18218470 (Version 1)
Quarter: 2020Q3

REPORT INFORMATION
  Report Type: Spontaneous
  Country: US (occurrence: US)
  Receive Date: 20200901
  Receipt Date: 20200901
  Transmission Date: 20201103
  Serious: Yes (Hospitalization)
  Sender: FDA-Public Use
  Company Number: None

PATIENT
  Age: 12 Year
  Sex: Female
  Weight: 50.5 kg

DRUGS (4)
  1. METHOTREXATE. [Suspect]
     Active Substance: METHOTREXATE
     Dates: end: 20200825
  2. CYCLOPHOSPHAMIDE. [Suspect]
     Active Substance: CYCLOPHOSPHAMIDE
     Dates: end: 20200825
  3. MERCAPTOPURINE. [Suspect]
     Active Substance: MERCAPTOPURINE
     Dates: end: 20200825
  4. CYTARABINE. [Suspect]
     Active Substance: CYTARABINE
     Dates: end: 20200825

REACTIONS (4)
  - Leukoencephalopathy [None]
  - Hemiparesis [None]
  - Sensory disturbance [None]
  - Gait inability [None]

NARRATIVE: CASE EVENT DATE: 20200830
